FAERS Safety Report 21530032 (Version 1)
Quarter: 2022Q4

REPORT INFORMATION
  Report Type: Spontaneous
  Country: IT (occurrence: IT)
  Receive Date: 20221031
  Receipt Date: 20221031
  Transmission Date: 20230113
  Serious: Yes (Hospitalization)
  Sender: FDA-Public Use
  Company Number: None

PATIENT
  Age: 70 Year
  Sex: Male

DRUGS (6)
  1. BCG LIVE [Suspect]
     Active Substance: BACILLUS CALMETTE-GUERIN SUBSTRAIN TICE LIVE ANTIGEN
     Indication: Bladder cancer
  2. BROTIZOLAM [Concomitant]
     Active Substance: BROTIZOLAM
  3. ESOMEPRAZOLE [Concomitant]
     Active Substance: ESOMEPRAZOLE
     Indication: Gastrooesophageal reflux disease
  4. SILODOSIN [Concomitant]
     Active Substance: SILODOSIN
  5. XANAX [Concomitant]
     Active Substance: ALPRAZOLAM
  6. AVODART [Concomitant]
     Active Substance: DUTASTERIDE

REACTIONS (1)
  - Atypical mycobacterial pneumonia [Recovering/Resolving]

NARRATIVE: CASE EVENT DATE: 20220725
